FAERS Safety Report 20732152 (Version 2)
Quarter: 2022Q2

REPORT INFORMATION
  Report Type: Spontaneous
  Country: US (occurrence: US)
  Receive Date: 20220420
  Receipt Date: 20220519
  Transmission Date: 20220721
  Serious: Yes (Other)
  Sender: FDA-Public Use
  Company Number: US-BAYER-2022A052845

PATIENT
  Age: 20 Year
  Sex: Female
  Weight: 102.49 kg

DRUGS (1)
  1. KYLEENA [Suspect]
     Active Substance: LEVONORGESTREL
     Indication: Contraception
     Dosage: 17.5?G/DAY
     Route: 015
     Dates: start: 201910, end: 20220405

REACTIONS (2)
  - Device dislocation [Recovered/Resolved]
  - Cervix disorder [None]

NARRATIVE: CASE EVENT DATE: 20220405
